FAERS Safety Report 4382709-1 (Version None)
Quarter: 2004Q2

REPORT INFORMATION
  Report Type: 
  Country: None (occurrence: None)
  Receive Date: 20040616
  Receipt Date: 20040518
  Transmission Date: 20050107
  Serious: Yes (Hospitalization)
  Sender: FDA-Public Use
  Company Number: D-04-023

PATIENT
  Age: 82 Year
  Sex: Male
  Weight: 128 kg

DRUGS (8)
  1. BACLOFEN [Suspect]
     Indication: NEUROPATHY
     Dosage: 5 MG TID PO
     Route: 048
     Dates: start: 20040430
  2. ALPRAZOLAM [Concomitant]
  3. ARICEPT [Concomitant]
  4. NEURONTIN [Concomitant]
  5. OXYCONTIN [Concomitant]
  6. TRAZDONE 50 MG QHS (FROM UNK CONTIN) [Concomitant]
  7. ENDOCET [Concomitant]
  8. MORPHINE PCA INTRATHECAL (FROM UNK (CONTIN)) [Concomitant]

REACTIONS (4)
  - ATAXIA [None]
  - HALLUCINATION [None]
  - LOSS OF CONSCIOUSNESS [None]
  - PNEUMONIA [None]
